FAERS Safety Report 4941251-7 (Version None)
Quarter: 2006Q1

REPORT INFORMATION
  Report Type: 
  Country: None (occurrence: None)
  Receive Date: 20060310
  Receipt Date: 20060310
  Transmission Date: 20060701
  Serious: Yes (Life-Threatening, Hospitalization)
  Sender: FDA-Public Use
  Company Number: None

PATIENT
  Age: 74 Year
  Sex: Male
  Weight: 76 kg

DRUGS (10)
  1. VANCOMYCIN [Suspect]
     Indication: IMPLANTABLE DEFIBRILLATOR INSERTION
     Dosage: 1 GRAM ON CALL SURGERY IV
     Route: 042
     Dates: start: 20051006
  2. FOLIC ACID [Concomitant]
  3. PREVACID [Concomitant]
  4. EPOGEN [Concomitant]
  5. COZAAR [Concomitant]
  6. ZOLOFT [Concomitant]
  7. DIGOXIN [Concomitant]
  8. COREG [Concomitant]
  9. NEPHRO CAPS [Concomitant]
  10. RENAGEL [Concomitant]

REACTIONS (2)
  - ANAPHYLACTIC REACTION [None]
  - RESPIRATORY ARREST [None]
